FAERS Safety Report 6240564-9 (Version None)
Quarter: 2009Q2

REPORT INFORMATION
  Report Type: 
  Country: None (occurrence: None)
  Receive Date: 20090623
  Receipt Date: 20080929
  Transmission Date: 20091009
  Serious: No
  Sender: FDA-Public Use
  Company Number: US-ASTRAZENECA-2008UW20623

PATIENT
  Age: 48 Year
  Sex: Male
  Weight: 83.9 kg

DRUGS (2)
  1. PULMICORT RESPULES [Suspect]
     Route: 055
  2. VENTALIN [Concomitant]

REACTIONS (9)
  - ABDOMINAL DISTENSION [None]
  - AGITATION [None]
  - FATIGUE [None]
  - GASTROINTESTINAL DISORDER [None]
  - HEADACHE [None]
  - MUSCULAR WEAKNESS [None]
  - OFF LABEL USE [None]
  - POSTNASAL DRIP [None]
  - THIRST [None]
